FAERS Safety Report 10845377 (Version 1)
Quarter: 2015Q1

REPORT INFORMATION
  Report Type: Report from Study
  Country: US (occurrence: US)
  Receive Date: 20150220
  Receipt Date: 20150220
  Transmission Date: 20150721
  Serious: No
  Sender: FDA-Public Use
  Company Number: US-ABBVIE-14P-163-1297054-00

PATIENT
  Age: 53 Year
  Sex: Female

DRUGS (1)
  1. HUMIRA [Suspect]
     Active Substance: ADALIMUMAB
     Indication: CROHN^S DISEASE
     Route: 065
     Dates: start: 20140928

REACTIONS (7)
  - Asthenia [Recovering/Resolving]
  - Injection site irritation [Recovered/Resolved]
  - Injection site erythema [Recovered/Resolved]
  - Disorientation [Recovered/Resolved]
  - Vision blurred [Unknown]
  - Arthralgia [Recovering/Resolving]
  - Nausea [Recovered/Resolved]

NARRATIVE: CASE EVENT DATE: 20140928
